FAERS Safety Report 7220364-3 (Version None)
Quarter: 2011Q1

REPORT INFORMATION
  Report Type: 
  Country: None (occurrence: None)
  Receive Date: 20110111
  Receipt Date: 20101231
  Transmission Date: 20110831
  Serious: Yes (Other)
  Sender: FDA-Public Use
  Company Number: WS-CELGENEUS-163-21880-11010698

PATIENT
  Sex: Male

DRUGS (4)
  1. PREDNISONE [Concomitant]
     Route: 065
     Dates: start: 20100101
  2. REVLIMID [Suspect]
     Indication: MYELOFIBROSIS
     Route: 048
     Dates: start: 20100701, end: 20101101
  3. RED BLOOD CELLS [Concomitant]
     Dosage: 2 UNITS
     Route: 051
     Dates: start: 20100101, end: 20100101
  4. ARANESP [Concomitant]
     Route: 065
     Dates: start: 20100101

REACTIONS (2)
  - DRUG INEFFECTIVE [None]
  - CHOLECYSTECTOMY [None]
